FAERS Safety Report 9570456 (Version 1)
Quarter: 2013Q3

REPORT INFORMATION
  Report Type: Spontaneous
  Country: US (occurrence: US)
  Receive Date: 20130930
  Receipt Date: 20130930
  Transmission Date: 20140515
  Serious: No
  Sender: FDA-Public Use
  Company Number: US-AMGEN-USASP2013064013

PATIENT
  Age: 37 Year
  Sex: Male
  Weight: 99.77 kg

DRUGS (5)
  1. ENBREL [Suspect]
     Indication: PRODUCT USED FOR UNKNOWN INDICATION
     Dosage: 50 MG, QWK
     Route: 058
  2. FLEXERIL                           /00428402/ [Concomitant]
     Dosage: 10 MG, UNK
  3. IBUPROFEN [Concomitant]
     Dosage: 800 MG, UNK
  4. NAPROXEN SOD [Concomitant]
     Dosage: 220 MG, UNK
  5. PREDNISONE [Concomitant]
     Dosage: 5 MG, UNK

REACTIONS (6)
  - Back injury [Unknown]
  - Muscle strain [Unknown]
  - Intervertebral disc injury [Unknown]
  - Drug effect incomplete [Unknown]
  - Peripheral coldness [Unknown]
  - Skin discolouration [Unknown]
